FAERS Safety Report 11105420 (Version 1)
Quarter: 2015Q2

REPORT INFORMATION
  Report Type: Not Available
  Country: US (occurrence: US)
  Receive Date: 20150512
  Receipt Date: 20150512
  Transmission Date: 20150821
  Serious: No
  Sender: FDA-Public Use
  Company Number: US-LUPIN PHARMACEUTICALS INC.-E2B_00003383

PATIENT
  Age: 67 Year
  Sex: Male
  Weight: 140.74 kg

DRUGS (3)
  1. METFORMIN [Concomitant]
     Active Substance: METFORMIN HYDROCHLORIDE
     Indication: DIABETES MELLITUS
  2. TRAMADOL HYDROCHLORIDE EXTENDED-RELEASE TABLETS 100 MG [Suspect]
     Active Substance: TRAMADOL HYDROCHLORIDE
     Dates: end: 201503
  3. TRAMADOL HYDROCHLORIDE EXTENDED-RELEASE TABLETS 100 MG [Suspect]
     Active Substance: TRAMADOL HYDROCHLORIDE
     Indication: ARTHRITIS
     Dates: start: 20150216

REACTIONS (2)
  - Pruritus [Recovered/Resolved]
  - Rash [Recovered/Resolved]

NARRATIVE: CASE EVENT DATE: 201503
